FAERS Safety Report 4382923-5 (Version None)
Quarter: 2004Q2

REPORT INFORMATION
  Report Type: 
  Country: None (occurrence: None)
  Receive Date: 20040617
  Receipt Date: 20040607
  Transmission Date: 20050107
  Serious: Yes (Other)
  Sender: FDA-Public Use
  Company Number: 2004034104

PATIENT
  Age: 51 Year
  Sex: Male
  Weight: 117.4816 kg

DRUGS (9)
  1. VIAGRA [Suspect]
     Indication: ERECTILE DYSFUNCTION
     Dosage: 100 MG (100 MG, AS NEEDED), ORAL
     Route: 048
     Dates: start: 20040415, end: 20040518
  2. WARFARIN SODIUM [Suspect]
     Indication: ATRIAL FIBRILLATION
     Dosage: 5 MG DAILY EXCEPT WEDNESDAY) (7.5 MG) (1 IN 1 D)
     Dates: start: 20000512
  3. ATORVASTATIN (ATORVASTATIN) [Concomitant]
  4. CHLORTALIDONE (CHLORTALIDONE) [Concomitant]
  5. DIGOXIN [Concomitant]
  6. METOPROFOL (METOPROFOL) [Concomitant]
  7. DILTIAZEM [Concomitant]
  8. FUROSEMIDE [Concomitant]
  9. ATENOLOL [Concomitant]

REACTIONS (1)
  - INTERNATIONAL NORMALISED RATIO INCREASED [None]
